FAERS Safety Report 18858222 (Version 1)
Quarter: 2021Q1

REPORT INFORMATION
  Report Type: Spontaneous
  Country: GB (occurrence: GB)
  Receive Date: 20210208
  Receipt Date: 20210208
  Transmission Date: 20210420
  Serious: Yes (Disabling)
  Sender: FDA-Public Use
  Company Number: GB-TILLOMEDPR-E2B_00002894

PATIENT
  Age: 84 Year
  Sex: Female

DRUGS (7)
  1. ZOLEDRONIC ACID [Suspect]
     Active Substance: ZOLEDRONIC ACID
     Indication: OSTEOPOROSIS
     Dosage: 5,MILLIGRAM
     Route: 042
     Dates: start: 20180312
  2. CLOPIDOGREL [Concomitant]
     Active Substance: CLOPIDOGREL BISULFATE
  3. ERDOSTEINE [Concomitant]
     Active Substance: ERDOSTEINE
  4. LEVOTHYROXINE SODIUM. [Concomitant]
     Active Substance: LEVOTHYROXINE SODIUM
  5. OMEPRAZOLE SODIUM [Concomitant]
     Active Substance: OMEPRAZOLE SODIUM
  6. PREDNISOLONE. [Concomitant]
     Active Substance: PREDNISOLONE
  7. CANDESARTAN CILEXETIL. [Concomitant]
     Active Substance: CANDESARTAN CILEXETIL

REACTIONS (7)
  - Atrial fibrillation [Not Recovered/Not Resolved]
  - Swelling face [Unknown]
  - Joint swelling [Unknown]
  - Off label use [Unknown]
  - Arthralgia [Unknown]
  - Pain [Unknown]
  - Rheumatoid arthritis [Not Recovered/Not Resolved]

NARRATIVE: CASE EVENT DATE: 20180313
